FAERS Safety Report 20432013 (Version 1)
Quarter: 2022Q1

REPORT INFORMATION
  Report Type: Spontaneous
  Country: CA (occurrence: CA)
  Receive Date: 20220204
  Receipt Date: 20220204
  Transmission Date: 20220423
  Serious: Yes (Other)
  Sender: FDA-Public Use
  Company Number: CA-PFIZER INC-202101740029

PATIENT
  Age: 81 Year
  Sex: Male

DRUGS (7)
  1. VYNDAQEL [Suspect]
     Active Substance: TAFAMIDIS MEGLUMINE
     Indication: Cardiac amyloidosis
     Dosage: 80 MG, 1X/DAY
     Route: 048
     Dates: start: 20191118, end: 2019
  2. VYNDAQEL [Suspect]
     Active Substance: TAFAMIDIS MEGLUMINE
     Dosage: 80 MG, 1X/DAY
     Route: 048
     Dates: start: 20191215
  3. CRESTOR [Concomitant]
     Active Substance: ROSUVASTATIN CALCIUM
     Dosage: UNK
  4. FUROSEMIDE [Concomitant]
     Active Substance: FUROSEMIDE
     Dosage: UNK
  5. LASIX [Concomitant]
     Active Substance: FUROSEMIDE
     Dosage: TAKES SOME ADDITIONAL LASIX WHEN HIS WEIGHT GOES ABOVE 148 POUNDS
  6. PANTOPRAZOLE [Concomitant]
     Active Substance: PANTOPRAZOLE
     Dosage: UNK
  7. VITAMIN D3 [Concomitant]
     Active Substance: CHOLECALCIFEROL
     Dosage: UNK

REACTIONS (9)
  - Bendopnoea [Unknown]
  - Syncope [Unknown]
  - Cardiac pacemaker insertion [Unknown]
  - Ejection fraction decreased [Not Recovered/Not Resolved]
  - Heart rate decreased [Unknown]
  - Atrial flutter [Not Recovered/Not Resolved]
  - Cardiac index decreased [Not Recovered/Not Resolved]
  - Weight increased [Unknown]
  - Left ventricular end-diastolic pressure increased [Unknown]
